FAERS Safety Report 7982267-6 (Version None)
Quarter: 2011Q4

REPORT INFORMATION
  Report Type: 
  Country: None (occurrence: None)
  Receive Date: 20111215
  Receipt Date: 20111215
  Transmission Date: 20120403
  Serious: Yes (Other)
  Sender: FDA-Public Use
  Company Number: None

PATIENT
  Sex: Male
  Weight: 70.3 kg

DRUGS (1)
  1. LORAZEPAM [Suspect]
     Indication: ALCOHOL WITHDRAWAL SYNDROME
     Dosage: 2-7 MG/HR
     Route: 042

REACTIONS (2)
  - SINUS TACHYCARDIA [None]
  - TACHYPNOEA [None]
